FAERS Safety Report 16425171 (Version 3)
Quarter: 2019Q3

REPORT INFORMATION
  Report Type: Spontaneous
  Country: PT (occurrence: PT)
  Receive Date: 20190613
  Receipt Date: 20190924
  Transmission Date: 20191004
  Serious: Yes (Death, Hospitalization, Other)
  Sender: FDA-Public Use
  Company Number: PT-009507513-1906PRT004637

PATIENT
  Age: 83 Year
  Sex: Male
  Weight: 75 kg

DRUGS (5)
  1. APIDRA [Concomitant]
     Active Substance: INSULIN GLULISINE
     Dosage: 15 UI, AT BREAKFAST AND 15 UI AT DINNER
  2. ENALAPRIL MALEATE (+) LERCANIDIPINE HYDROCHLORIDE [Concomitant]
     Active Substance: ENALAPRIL MALEATE\LERCANIDIPINE HYDROCHLORIDE
     Dosage: 10/10 MILLIGRAM
  3. LANTUS [Concomitant]
     Active Substance: INSULIN GLARGINE
     Dosage: 20 INTERNATIONAL UNIT, AT BREAKFAST
  4. ZEPATIER [Suspect]
     Active Substance: ELBASVIR\GRAZOPREVIR
     Indication: HEPATITIS C
     Dosage: 100+50 MG ONCE DAILY FOR 12 WEEKS
     Route: 048
     Dates: start: 20181024, end: 20190116
  5. AVODART [Concomitant]
     Active Substance: DUTASTERIDE
     Dosage: 0.5 MILLIGRAM

REACTIONS (28)
  - Abdominal distension [Unknown]
  - Hepatic encephalopathy [Fatal]
  - Dyspnoea [Unknown]
  - Renal disorder [Unknown]
  - Infection parasitic [Unknown]
  - Hair disorder [Unknown]
  - Constipation [Unknown]
  - Loss of personal independence in daily activities [Unknown]
  - Fatigue [Unknown]
  - Ascites [Unknown]
  - Hepatorenal syndrome [Unknown]
  - Chills [Unknown]
  - Telangiectasia [Unknown]
  - Flushing [Unknown]
  - Somnolence [Unknown]
  - Abdominal pain [Unknown]
  - Nausea [Unknown]
  - Moaning [Unknown]
  - Abdominal distension [Unknown]
  - Vomiting [Unknown]
  - Malaise [Unknown]
  - Hepatic cirrhosis [Fatal]
  - Decreased appetite [Unknown]
  - Peritonitis bacterial [Unknown]
  - Dehydration [Unknown]
  - Pain [Unknown]
  - Thirst [Unknown]
  - General physical health deterioration [Fatal]

NARRATIVE: CASE EVENT DATE: 2019
